FAERS Safety Report 18622262 (Version 1)
Quarter: 2020Q4

REPORT INFORMATION
  Report Type: Spontaneous
  Country: FR (occurrence: FR)
  Receive Date: 20201216
  Receipt Date: 20201216
  Transmission Date: 20210114
  Serious: Yes (Death)
  Sender: FDA-Public Use
  Company Number: FR-TEVA-2020-FR-1858104

PATIENT
  Age: 58 Year
  Sex: Female
  Weight: 74 kg

DRUGS (12)
  1. LANSOPRAZOLE. [Concomitant]
     Active Substance: LANSOPRAZOLE
     Indication: PROPHYLAXIS AGAINST GASTROINTESTINAL ULCER
     Dosage: UNIT DOSE : 15 MG
     Route: 048
     Dates: start: 20201007
  2. UMULINE [Concomitant]
     Active Substance: INSULIN HUMAN
     Indication: TYPE 2 DIABETES MELLITUS
     Dosage: UNIT DOSE : 24 IU
     Route: 058
     Dates: start: 20201020, end: 20201031
  3. NOVORAPID [Concomitant]
     Active Substance: INSULIN ASPART
     Indication: TYPE 2 DIABETES MELLITUS
     Dosage: UNIT DOSE : 6 IU
     Route: 058
     Dates: start: 20201020
  4. PREDNISONE. [Suspect]
     Active Substance: PREDNISONE
     Indication: PROPHYLAXIS AGAINST TRANSPLANT REJECTION
     Dosage: UNIT DOSE : 55 MG
     Route: 048
     Dates: start: 201703, end: 20201031
  5. CELLCEPT [Interacting]
     Active Substance: MYCOPHENOLATE MOFETIL\MYCOPHENOLATE MOFETIL HYDROCHLORIDE
     Indication: PROPHYLAXIS AGAINST TRANSPLANT REJECTION
     Dosage: UNIT DOSE : 2 GRAM
     Route: 048
     Dates: start: 20201007, end: 20201027
  6. BACTRIM [Concomitant]
     Active Substance: SULFAMETHOXAZOLE\TRIMETHOPRIM
     Indication: INFECTION PROPHYLAXIS
     Dosage: UNIT DOSE : 3 DOSAGE FORMS
     Route: 048
     Dates: start: 20201020
  7. PHOSPHONEUROS, SOLUTION BUVABLE EN GOUTTES [Concomitant]
     Active Substance: CALCIUM PHOSPHATE, DIBASIC, ANHYDROUS\MAGNESIUM GLYCEROPHOSPHATE\PHOSPHORIC ACID\SODIUM PHOSPHATE, DIBASIC
     Indication: BLOOD PHOSPHORUS DECREASED
     Dosage: UNIT DOSE : 150 GTT
     Route: 048
     Dates: start: 20201020
  8. ADVAGRAF 5 MG, GELULE A LIBERATION PROLONGEE [Interacting]
     Active Substance: TACROLIMUS
     Indication: PROPHYLAXIS AGAINST TRANSPLANT REJECTION
     Dosage: UNIT DOSE : 1 DOSAGE FORMS
     Route: 048
     Dates: start: 20201007, end: 20201031
  9. VALACICLOVIR [Concomitant]
     Active Substance: VALACYCLOVIR HYDROCHLORIDE
     Indication: INFECTION PROPHYLAXIS
     Dosage: UNIT DOSE : 1000 MG
     Route: 048
     Dates: start: 20201020
  10. ACIDE FOLIQUE [Concomitant]
     Active Substance: FOLIC ACID
     Indication: FOLATE DEFICIENCY
     Dosage: UNIT DOSE : 25 MG
     Route: 048
     Dates: start: 20201020
  11. FUROSEMIDE. [Concomitant]
     Active Substance: FUROSEMIDE
     Indication: HYPERTENSION
     Dosage: UNIT DOSE : 80 MG
     Route: 048
     Dates: start: 20201020
  12. FUNGIZONE [Concomitant]
     Active Substance: AMPHOTERICIN B
     Indication: INFECTION PROPHYLAXIS
     Dosage: UNIT DOSE : 3 DOSAGE FORMS
     Route: 048
     Dates: start: 20201007

REACTIONS (3)
  - Escherichia infection [Fatal]
  - COVID-19 [Fatal]
  - Drug interaction [Fatal]

NARRATIVE: CASE EVENT DATE: 20201027
